FAERS Safety Report 7600346-X (Version None)
Quarter: 2011Q3

REPORT INFORMATION
  Report Type: 
  Country: None (occurrence: None)
  Receive Date: 20110711
  Receipt Date: 20110629
  Transmission Date: 20111222
  Serious: Yes (Other)
  Sender: FDA-Public Use
  Company Number: BR-BAYER-2011-006916

PATIENT
  Age: 38 Year
  Sex: Female
  Weight: 54.875 kg

DRUGS (3)
  1. RABEPRAZOLE SODIUM [Concomitant]
     Indication: GASTROOESOPHAGEAL REFLUX DISEASE
     Dosage: UNK
     Route: 048
     Dates: start: 20110201, end: 20110401
  2. MOTILIUM [Concomitant]
     Indication: GASTROOESOPHAGEAL REFLUX DISEASE
     Dosage: UNK
     Route: 048
     Dates: start: 20110201, end: 20110401
  3. MIRENA [Suspect]
     Indication: CONTRACEPTION
     Dosage: 20 MCG/24HR, CONT
     Route: 015
     Dates: start: 20101213, end: 20110601

REACTIONS (13)
  - CHOKING [None]
  - BLOOD CREATINE PHOSPHOKINASE INCREASED [None]
  - DYSPNOEA [None]
  - OVARIAN ENLARGEMENT [None]
  - PAIN [None]
  - BACK PAIN [None]
  - DEVICE DISLOCATION [None]
  - PHARYNGEAL DISORDER [None]
  - COUGH [None]
  - PROCEDURAL PAIN [None]
  - OVARIAN CYST [None]
  - ABDOMINAL DISCOMFORT [None]
  - MENOMETRORRHAGIA [None]
